FAERS Safety Report 16145959 (Version 1)
Quarter: 2019Q2

REPORT INFORMATION
  Report Type: Spontaneous
  Country: HU (occurrence: HU)
  Receive Date: 20190402
  Receipt Date: 20190402
  Transmission Date: 20190711
  Serious: Yes (Life-Threatening, Hospitalization, Other)
  Sender: FDA-Public Use
  Company Number: HU-MACLEODS PHARMACEUTICALS US LTD-MAC2019020678

PATIENT

DRUGS (7)
  1. NITRATES [Suspect]
     Active Substance: UNSPECIFIED INGREDIENT
     Indication: PRODUCT USED FOR UNKNOWN INDICATION
     Dosage: UNK
     Route: 065
  2. COUMARIN [Concomitant]
     Active Substance: COUMARIN
     Indication: PRODUCT USED FOR UNKNOWN INDICATION
     Dosage: UNK, FOR A LONG TIME
     Route: 065
  3. AMLODIPINE BESYLATE. [Suspect]
     Active Substance: AMLODIPINE BESYLATE
     Indication: PRODUCT USED FOR UNKNOWN INDICATION
     Dosage: UNK, FOR A LONG TIME
     Route: 065
  4. PERINDOPRIL [Suspect]
     Active Substance: PERINDOPRIL
     Indication: PRODUCT USED FOR UNKNOWN INDICATION
     Dosage: UNK,
     Route: 065
  5. POTASSIUM [Suspect]
     Active Substance: POTASSIUM
     Indication: PRODUCT USED FOR UNKNOWN INDICATION
     Dosage: UNK,FOR A LONG TIME
     Route: 065
  6. THIAZIDE DIURETIC [Suspect]
     Active Substance: UNSPECIFIED INGREDIENT
     Indication: PRODUCT USED FOR UNKNOWN INDICATION
     Dosage: UNK
     Route: 065
  7. FUROSEMIDE. [Suspect]
     Active Substance: FUROSEMIDE
     Indication: PRODUCT USED FOR UNKNOWN INDICATION
     Dosage: UNK, FOR A LONG TIME
     Route: 065

REACTIONS (3)
  - Drug ineffective [Recovered/Resolved]
  - Renal impairment [Recovered/Resolved]
  - Hyponatraemia [Recovered/Resolved]
